FAERS Safety Report 23128235 (Version 3)
Quarter: 2024Q3

REPORT INFORMATION
  Report Type: Spontaneous
  Country: CA (occurrence: CA)
  Receive Date: 20231031
  Receipt Date: 20240902
  Transmission Date: 20241016
  Serious: Yes (Hospitalization, Other)
  Sender: AUROBINDO
  Company Number: CA-AUROBINDO-AUR-APL-2023-065940

PATIENT
  Age: 32 Year
  Sex: Male

DRUGS (29)
  1. AMLODIPINE [Suspect]
     Active Substance: AMLODIPINE BESYLATE
     Indication: Complications of transplanted heart
     Dosage: 10 MILLIGRAM, ONCE A DAY (DAILY)
     Route: 065
  2. AMLODIPINE [Suspect]
     Active Substance: AMLODIPINE BESYLATE
     Indication: Angiopathy
     Dosage: UNK
     Route: 065
  3. CLOPIDOGREL [Suspect]
     Active Substance: CLOPIDOGREL BISULFATE
     Indication: Coronary artery disease
     Dosage: UNK
     Route: 065
  4. CLOPIDOGREL [Suspect]
     Active Substance: CLOPIDOGREL BISULFATE
     Indication: Complications of transplanted heart
  5. CLOPIDOGREL [Suspect]
     Active Substance: CLOPIDOGREL BISULFATE
     Indication: Angiopathy
  6. HYDRALAZINE [Suspect]
     Active Substance: HYDRALAZINE HYDROCHLORIDE
     Indication: Coronary artery disease
     Dosage: 100 MILLIGRAM, 3 TIMES A DAY (3 TIMES DAILY)
     Route: 065
  7. HYDRALAZINE [Suspect]
     Active Substance: HYDRALAZINE HYDROCHLORIDE
     Indication: Complications of transplanted heart
  8. HYDRALAZINE [Suspect]
     Active Substance: HYDRALAZINE HYDROCHLORIDE
     Indication: Angiopathy
  9. PRAVASTATIN [Suspect]
     Active Substance: PRAVASTATIN
     Indication: Coronary artery disease
     Dosage: 60 MILLIGRAM, ONCE A DAY (DIALY)
     Route: 065
  10. PRAVASTATIN [Suspect]
     Active Substance: PRAVASTATIN
     Indication: Complications of transplanted heart
  11. PRAVASTATIN [Suspect]
     Active Substance: PRAVASTATIN
     Indication: Angiopathy
  12. ASPIRIN [Suspect]
     Active Substance: ASPIRIN
     Indication: Coronary artery disease
     Dosage: UNK
     Route: 065
  13. ASPIRIN [Suspect]
     Active Substance: ASPIRIN
     Indication: Complications of transplanted heart
  14. ASPIRIN [Suspect]
     Active Substance: ASPIRIN
     Indication: Angiopathy
  15. HYDROMORPHONE [Suspect]
     Active Substance: HYDROMORPHONE
     Indication: Coronary artery disease
     Dosage: 9 MILLIGRAM, TWO TIMES A DAY (DAILY), EXTENDED RELEASE
     Route: 065
  16. HYDROMORPHONE [Suspect]
     Active Substance: HYDROMORPHONE
     Indication: Pain
     Dosage: 2 MILLIGRAM, AS NECESSARY
     Route: 065
  17. HYDROMORPHONE [Suspect]
     Active Substance: HYDROMORPHONE
     Indication: Complications of transplanted heart
  18. HYDROMORPHONE [Suspect]
     Active Substance: HYDROMORPHONE
     Indication: Angiopathy
  19. METOPROLOL [Suspect]
     Active Substance: METOPROLOL
     Indication: Coronary artery disease
     Dosage: 100 MILLIGRAM, 3 TIMES A DAY (3 TIMES DAILY)
     Route: 065
  20. METOPROLOL [Suspect]
     Active Substance: METOPROLOL
     Indication: Complications of transplanted heart
  21. METOPROLOL [Suspect]
     Active Substance: METOPROLOL
     Indication: Angiopathy
  22. SIROLIMUS [Suspect]
     Active Substance: SIROLIMUS
     Indication: Coronary artery disease
     Dosage: UNK
     Route: 065
  23. SIROLIMUS [Suspect]
     Active Substance: SIROLIMUS
     Indication: Complications of transplanted heart
  24. SIROLIMUS [Suspect]
     Active Substance: SIROLIMUS
     Indication: Angiopathy
  25. TACROLIMUS [Suspect]
     Active Substance: TACROLIMUS
     Indication: Coronary artery disease
     Dosage: UNK
     Route: 065
  26. TACROLIMUS [Suspect]
     Active Substance: TACROLIMUS
     Indication: Complications of transplanted heart
  27. TACROLIMUS [Suspect]
     Active Substance: TACROLIMUS
     Indication: Angiopathy
  28. RANOLAZINE [Concomitant]
     Active Substance: RANOLAZINE
     Indication: Chest pain
     Dosage: 250 MILLIGRAM, TWO TIMES A DAY
     Route: 065
  29. RANOLAZINE [Concomitant]
     Active Substance: RANOLAZINE
     Dosage: 500 MILLIGRAM, TWO TIMES A DAY
     Route: 065

REACTIONS (4)
  - Therapeutic product ineffective [Unknown]
  - Drug ineffective for unapproved indication [Unknown]
  - Off label use [Unknown]
  - Drug ineffective [Unknown]
